FAERS Safety Report 6793533-4 (Version None)
Quarter: 2010Q2

REPORT INFORMATION
  Report Type: 
  Country: None (occurrence: None)
  Receive Date: 20100624
  Receipt Date: 20081210
  Transmission Date: 20101027
  Serious: No
  Sender: FDA-Public Use
  Company Number: US-PFIZER INC-2008154509

PATIENT
  Sex: Male

DRUGS (2)
  1. XALATAN [Suspect]
  2. DRUG, UNSPECIFIED [Concomitant]
     Dosage: UNK

REACTIONS (2)
  - EYE IRRITATION [None]
  - VISION BLURRED [None]
